FAERS Safety Report 14177202 (Version 5)
Quarter: 2018Q4

REPORT INFORMATION
  Report Type: Spontaneous
  Country: US (occurrence: US)
  Receive Date: 20171110
  Receipt Date: 20181001
  Transmission Date: 20190204
  Serious: Yes (Death, Other)
  Sender: FDA-Public Use
  Company Number: US-PFIZER INC-2017482298

PATIENT
  Age: 68 Year
  Sex: Female
  Weight: 54.87 kg

DRUGS (3)
  1. INLYTA [Suspect]
     Active Substance: AXITINIB
     Dosage: 5 MG, 2X/DAY
     Route: 048
     Dates: start: 20170301, end: 201709
  2. INLYTA [Suspect]
     Active Substance: AXITINIB
     Indication: METASTATIC RENAL CELL CARCINOMA
     Dosage: 5 MG, 2X/DAY
     Route: 048
     Dates: start: 20170301
  3. INLYTA [Suspect]
     Active Substance: AXITINIB
     Dosage: 5 MG, 2X/DAY
     Route: 048

REACTIONS (15)
  - Constipation [Unknown]
  - Ascites [Unknown]
  - Abdominal symptom [Unknown]
  - Asthenia [Unknown]
  - Weight decreased [Unknown]
  - Malaise [Unknown]
  - Balance disorder [Unknown]
  - Productive cough [Unknown]
  - Nausea [Unknown]
  - Headache [Unknown]
  - Urinary tract infection [Unknown]
  - Decreased appetite [Unknown]
  - Vomiting [Unknown]
  - Abdominal distension [Unknown]
  - Death [Fatal]

NARRATIVE: CASE EVENT DATE: 20171107
